FAERS Safety Report 9788871 (Version 2)
Quarter: 2014Q2

REPORT INFORMATION
  Report Type: Spontaneous
  Country: FR (occurrence: FR)
  Receive Date: 20131230
  Receipt Date: 20140520
  Transmission Date: 20141212
  Serious: Yes (Hospitalization)
  Sender: FDA-Public Use
  Company Number: FR-GLAXOSMITHKLINE-B0953260A

PATIENT
  Age: 86 Year
  Sex: Male

DRUGS (5)
  1. ZOPHREN [Suspect]
     Indication: PREMEDICATION
     Dosage: 8MG PER DAY
     Route: 048
     Dates: start: 20130827, end: 20130828
  2. LEVACT (BENDAMUSTINE HYDROCHLORIDE) [Suspect]
     Indication: NON-HODGKIN^S LYMPHOMA RECURRENT
     Dosage: 115MG PER DAY
     Route: 042
     Dates: start: 20130827, end: 20130828
  3. POLARAMINE [Suspect]
     Indication: PREMEDICATION
     Dosage: 5MG SINGLE DOSE
     Route: 042
     Dates: start: 20130827, end: 20130827
  4. PARACETAMOL [Suspect]
     Indication: PREMEDICATION
     Dosage: 1G SINGLE DOSE
     Route: 048
     Dates: start: 20130827, end: 20130827
  5. CORTANCYL [Suspect]
     Indication: PREMEDICATION
     Dosage: 20MG TWICE PER DAY
     Route: 048
     Dates: start: 20130827, end: 20130828

REACTIONS (12)
  - Rash [Unknown]
  - Renal failure acute [Recovering/Resolving]
  - Urticaria [Unknown]
  - Abdominal pain [Unknown]
  - Pyrexia [Recovered/Resolved]
  - Nausea [Unknown]
  - Normochromic normocytic anaemia [Unknown]
  - Eosinophilia [Recovering/Resolving]
  - Blood uric acid increased [Recovered/Resolved]
  - Blood phosphorus increased [Recovered/Resolved]
  - Oliguria [Recovered/Resolved]
  - Tumour lysis syndrome [Unknown]
